FAERS Safety Report 4964701-9 (Version None)
Quarter: 2006Q1

REPORT INFORMATION
  Report Type: 
  Country: None (occurrence: None)
  Receive Date: 20060331
  Receipt Date: 20060316
  Transmission Date: 20060701
  Serious: Yes (Other)
  Sender: FDA-Public Use
  Company Number: US200603004840

PATIENT
  Age: 52 Year
  Sex: Female

DRUGS (2)
  1. CYMBALTA [Suspect]
     Indication: ANXIETY
     Dates: start: 20051201
  2. OMEPRAZOLE [Concomitant]

REACTIONS (3)
  - BLOOD AMYLASE INCREASED [None]
  - FEELING ABNORMAL [None]
  - PANCREATITIS [None]
